FAERS Safety Report 17414427 (Version 7)
Quarter: 2021Q2

REPORT INFORMATION
  Report Type: Spontaneous
  Country: NL (occurrence: NL)
  Receive Date: 20200213
  Receipt Date: 20210617
  Transmission Date: 20210716
  Serious: Yes (Other)
  Sender: FDA-Public Use
  Company Number: NL-FRESENIUS KABI-FK202001374

PATIENT
  Age: 24 Year
  Sex: Female

DRUGS (37)
  1. BISACODYL. [Suspect]
     Active Substance: BISACODYL
     Indication: CONSTIPATION
     Dosage: ON THE 2 DAYS IN BETWEEN THE PATIENT USES 2 BISACODYL, ONLY IN BAD PERIODS (), BISACODYL 5 MG
     Route: 065
  2. BISACODYL. [Suspect]
     Active Substance: BISACODYL
     Indication: PRODUCT USED FOR UNKNOWN INDICATION
     Dosage: THE PATIENT^S RECORD DOSING IS 11 ()
     Route: 065
  3. BISACODYL. [Suspect]
     Active Substance: BISACODYL
     Dosage: 6?9 TABLETS AVERAGE, Q3D
     Route: 065
     Dates: start: 2012
  4. BISACODYL. [Suspect]
     Active Substance: BISACODYL
  5. SODIUM PHOSPHATE DIBASIC/PHOSPHORIC ACID SODIUM [Suspect]
     Active Substance: PHOSPHORIC ACID\SODIUM PHOSPHATE, DIBASIC
     Indication: CONSTIPATION
     Dosage: ENEMA, WHEN NECESSARY, SINCE THE AGE OF APPROX. 14, COLEX KLYSMAQ2M
     Route: 065
  6. SODIUM BICARBONATE/POTASSIUM CHLORIDE/SODIUM CHLORIDE/MACROGOL [Suspect]
     Active Substance: POLYETHYLENE GLYCOL\POTASSIUM CHLORIDE\SODIUM BICARBONATE\SODIUM CHLORIDE
     Indication: CONSTIPATION
     Dosage: SACHETS, SINCE THE AGE OF APPROX. 14 ()
     Route: 065
     Dates: start: 2010
  7. BISACODYL. [Suspect]
     Active Substance: BISACODYL
     Dosage: UNK
     Route: 065
  8. BISACODYL. [Suspect]
     Active Substance: BISACODYL
     Dosage: 2 DF, ON THE 2 DAYS IN BETWEEN (5MG TEVA)
     Route: 065
     Dates: start: 2012
  9. MACROGOL [Suspect]
     Active Substance: POLYETHYLENE GLYCOLS
     Indication: PRODUCT USED FOR UNKNOWN INDICATION
     Dosage: UNK
     Route: 065
  10. BISACODYL. [Suspect]
     Active Substance: BISACODYL
     Dosage: B/W 6 AND 9 TABLETS, EVERY THIRD DAY, ON 2 DAYS IN B/W PATIENT USES 2 BISACODYL, ONLY IN BAD PERI...
     Route: 065
  11. BISACODYL. [Suspect]
     Active Substance: BISACODYL
     Dosage: 2 DF, ON THE 2 DAYS IN BETWEEN, ONLY IN BAD PERIODS
     Route: 065
     Dates: start: 2012
  12. BISACODYL. [Suspect]
     Active Substance: BISACODYL
     Dosage: 5 MILLIGRAM
     Route: 065
  13. BISACODYL. [Suspect]
     Active Substance: BISACODYL
     Indication: PRODUCT USED FOR UNKNOWN INDICATION
     Dosage: DOSE NOT REPORTED?THE PATIENT^S RECORD DOSING IS 11(5MGTEVA)
     Route: 065
  14. SODIUM PHOSPHATE [Suspect]
     Active Substance: SODIUM PHOSPHATE
     Dosage: UNK (RINSING, APPROX. ONCE EVERY 2 MONTHS, SINCE THE AGE OF APPROX)
     Route: 065
     Dates: start: 2010
  15. SODIUM PHOSPHATE DIBASIC DODECAHYDRATE/SODIUM PHOSPHATE MONOBASIC (DIHYDRATE) [Suspect]
     Active Substance: SODIUM PHOSPHATE, DIBASIC, DODECAHYDRATE\SODIUM PHOSPHATE, MONOBASIC
     Indication: CONSTIPATION
     Dosage: RINSING, APPROX. ONCE EVERY 2 MONTHS, SINCE THE AGE OF APPROX. 14
     Route: 065
  16. SODIUM PHOSPHATE DIBASIC/PHOSPHORIC ACID SODIUM [Suspect]
     Active Substance: PHOSPHORIC ACID\SODIUM PHOSPHATE, DIBASIC
     Indication: CONSTIPATION
     Dosage: ENEMA, WHEN NECESSARY, SINCE THE AGE OF APPROX. 14
     Route: 054
  17. SODIUM PHOSPHATE DIBASIC/PHOSPHORIC ACID SODIUM [Suspect]
     Active Substance: PHOSPHORIC ACID\SODIUM PHOSPHATE, DIBASIC
     Dosage: ENEMA, WHEN NECESSARY, SINCE THE AGE OF APPROX. 14
     Route: 065
  18. BISACODYL. [Suspect]
     Active Substance: BISACODYL
     Dosage: UNK
     Route: 065
  19. SODIUM BICARBONATE/POTASSIUM CHLORIDE/SODIUM CHLORIDE/SODIUM SULFATE ANHYDROUS/MACROGOL 3350 [Suspect]
     Active Substance: POLYETHYLENE GLYCOL 3350\POTASSIUM CHLORIDE\SODIUM BICARBONATE\SODIUM CHLORIDE\SODIUM SULFATE
     Indication: PRODUCT USED FOR UNKNOWN INDICATION
     Dosage: UNK
     Route: 065
  20. MACROGOL 4000 [Suspect]
     Active Substance: POLYETHYLENE GLYCOL 4000
     Indication: PRODUCT USED FOR UNKNOWN INDICATION
     Dosage: DOSE NOT REPORTED ()?UNK
     Route: 065
  21. SODIUM PHOSPHATE [Suspect]
     Active Substance: SODIUM PHOSPHATE
     Indication: CONSTIPATION
     Dosage: UNK
     Route: 065
     Dates: start: 2010
  22. SODIUM PHOSPHATE [Suspect]
     Active Substance: SODIUM PHOSPHATE
     Dosage: UNK UNK, PRN (40 ML BOTTLES, SINCE THE AGE OF APPROX. )
     Route: 048
     Dates: start: 2010
  23. LACTULOSE (MANUFACTURER UNKNOWN) [Suspect]
     Active Substance: LACTULOSE
     Dosage: UNK
     Route: 065
     Dates: start: 2010
  24. SODIUM PHOSPHATE [Suspect]
     Active Substance: SODIUM PHOSPHATE
     Indication: CONSTIPATION
     Dosage: UNK, PRN NATRIUMFOSFAAT DOSING REGIMEN: 40 ML BOTTLE
     Route: 065
     Dates: start: 2010
  25. LACTULOSE (MANUFACTURER UNKNOWN) [Suspect]
     Active Substance: LACTULOSE
     Indication: CONSTIPATION
     Dosage: SINCE THE AGE OF APPROX.14
     Route: 065
  26. SODIUM PHOSPHATE [Suspect]
     Active Substance: SODIUM PHOSPHATE
     Indication: CONSTIPATION
     Dosage: 40 ML BOTTLES, SINCE THE AGE OF APPROX. 14 (), NATRIUMFOSFAAT
     Route: 048
  27. BISACODYL. [Suspect]
     Active Substance: BISACODYL
     Indication: CONSTIPATION
     Dosage: FOR ABOUT 8 YEARS, BETWEEN 6 AND 9 TABLETS AVERAGE, BISACODYL 5 MG
     Route: 065
     Dates: start: 2012
  28. BISACODYL. [Suspect]
     Active Substance: BISACODYL
     Dosage: 10 MILLIGRAM (BISACODYL 10 MG TEVA)
     Route: 065
  29. ASCORBIC ACID/SODIUM ASCORBATE/POTASSIUM CHLORIDE/SODIUM CHLORIDE/SODIUM SULFATE/MACROGOL 3350 [Suspect]
     Active Substance: ASCORBIC ACID\POLYETHYLENE GLYCOL 3350\POTASSIUM CHLORIDE\SODIUM ASCORBATE\SODIUM CHLORIDE\SODIUM SULFATE
     Indication: PRODUCT USED FOR UNKNOWN INDICATION
     Dosage: DOSE NOT REPORTED ()?UNK
     Route: 065
  30. MACROGOL 4000 [Suspect]
     Active Substance: POLYETHYLENE GLYCOL 4000
     Indication: PRODUCT USED FOR UNKNOWN INDICATION
     Dosage: UNK
     Route: 065
  31. BISACODYL. [Suspect]
     Active Substance: BISACODYL
     Dosage: NOT REPORTED ()
     Route: 065
     Dates: start: 2012
  32. SODIUM BICARBONATE/POTASSIUM CHLORIDE/SODIUM CHLORIDE/MACROGOL [Suspect]
     Active Substance: POLYETHYLENE GLYCOL\POTASSIUM CHLORIDE\SODIUM BICARBONATE\SODIUM CHLORIDE
     Indication: CONSTIPATION
     Dosage: SACHETS, SINCE THE AGE OF APPROX. 14
     Route: 065
  33. COLEXTRAN [Suspect]
     Active Substance: INVESTIGATIONAL PRODUCT
     Indication: CONSTIPATION
     Dosage: UNK UNK, PRN
     Route: 065
  34. CITRIC ACID/MAGNESIUM OXIDE/SODIUM PICOSULFATE [Suspect]
     Active Substance: ANHYDROUS CITRIC ACID\MAGNESIUM OXIDE\SODIUM PICOSULFATE
     Indication: COLONIC LAVAGE
     Dosage: DOSE NOT REPORTED
     Route: 065
  35. CITRIC ACID/MAGNESIUM OXIDE/SODIUM PICOSULFATE [Suspect]
     Active Substance: ANHYDROUS CITRIC ACID\MAGNESIUM OXIDE\SODIUM PICOSULFATE
     Indication: COLONIC LAVAGE
     Dosage: UNK
     Route: 065
  36. BISACODYL. [Suspect]
     Active Substance: BISACODYL
     Dosage: UNK
     Route: 065
  37. SODIUM CITRATE/SODIUM LAURYL SULFATE/SORBIC ACID/MACROGOL [Suspect]
     Active Substance: POLYETHYLENE GLYCOLS\SODIUM CITRATE\SODIUM LAURYL SULFATE\SORBIC ACID
     Indication: PRODUCT USED FOR UNKNOWN INDICATION
     Dosage: DOSE NOT REPORTED?UNK
     Route: 065

REACTIONS (37)
  - Pain [Unknown]
  - Product residue present [Unknown]
  - Non-pitting oedema [Unknown]
  - Gastrointestinal pain [Unknown]
  - Myalgia [Unknown]
  - Unevaluable event [Unknown]
  - Headache [Unknown]
  - Abdominal discomfort [Unknown]
  - Adverse event [Unknown]
  - Dyspnoea [Unknown]
  - Therapeutic product effect decreased [Unknown]
  - Burning sensation [Unknown]
  - Syncope [Unknown]
  - Skin texture abnormal [Unknown]
  - Fear [Unknown]
  - Gastrointestinal motility disorder [Unknown]
  - Fluid retention [Unknown]
  - Adrenal disorder [Unknown]
  - Paraesthesia [Unknown]
  - Musculoskeletal stiffness [Unknown]
  - Swelling [Unknown]
  - Anticipatory anxiety [Unknown]
  - General physical health deterioration [Unknown]
  - Skin tightness [Unknown]
  - Brain oedema [Unknown]
  - Constipation [Unknown]
  - Overdose [Unknown]
  - Product supply issue [Unknown]
  - Drug ineffective [Unknown]
  - Condition aggravated [Unknown]
  - Functional gastrointestinal disorder [Unknown]
  - Pulmonary oedema [Unknown]
  - Muscle oedema [Unknown]
  - Ocular discomfort [Unknown]
  - Weight increased [Unknown]
  - Overweight [Unknown]
  - Intentional product use issue [Unknown]

NARRATIVE: CASE EVENT DATE: 2010
